FAERS Safety Report 4952933-5 (Version None)
Quarter: 2006Q1

REPORT INFORMATION
  Report Type: 
  Country: None (occurrence: None)
  Receive Date: 20060324
  Receipt Date: 20060315
  Transmission Date: 20060701
  Serious: Yes (Other)
  Sender: FDA-Public Use
  Company Number: PHEH2006US03472

PATIENT
  Age: 64 Year
  Sex: Male

DRUGS (12)
  1. ZOMETA [Suspect]
     Indication: METASTASES TO BONE
     Dosage: 4 MG MONTHLY
     Dates: start: 20050609
  2. ELIGARD [Concomitant]
  3. VIADUR [Concomitant]
  4. HYTRIN [Concomitant]
     Dosage: 2 MG, QD
  5. TYLENOL [Concomitant]
     Dosage: UNK, PRN
  6. ADVIL [Concomitant]
     Dosage: UNK, PRN
  7. OMEGA 3 [Concomitant]
     Dosage: UNK, PRN
  8. KETOCONAZOLE [Concomitant]
     Dosage: 400 MG, QD
  9. REGLAN /USA/ [Concomitant]
     Dosage: 10 MG, TID
  10. PREDNISONE [Concomitant]
     Dosage: 10 MG, BID
  11. AMITRIPTYLINE HCL [Concomitant]
     Dosage: 25 MG, QD
  12. RITALIN [Concomitant]
     Dosage: 5 MG, TID

REACTIONS (3)
  - BONE DISORDER [None]
  - OSTEONECROSIS [None]
  - WOUND DEBRIDEMENT [None]
